FAERS Safety Report 18544775 (Version 4)
Quarter: 2021Q1

REPORT INFORMATION
  Report Type: Spontaneous
  Country: US (occurrence: US)
  Receive Date: 20201125
  Receipt Date: 20210210
  Transmission Date: 20210419
  Serious: No
  Sender: FDA-Public Use
  Company Number: US-AMGEN-USASP2020189048

PATIENT
  Age: 74 Year
  Sex: Female
  Weight: 84.37 kg

DRUGS (3)
  1. ENBREL [Suspect]
     Active Substance: ETANERCEPT
     Indication: RHEUMATOID ARTHRITIS
     Dosage: 50 MG, WEEKLY (ONCE A WEEK INJECTION)
     Route: 065
  2. METHOTREXATE. [Suspect]
     Active Substance: METHOTREXATE
     Dosage: 7.5 MG, WEEKLY ( THEN DECREASED TO 3 TABLETS ONCE WEEKLY A FEW YEARS AGO)
     Route: 065
     Dates: end: 202009
  3. METHOTREXATE. [Suspect]
     Active Substance: METHOTREXATE
     Indication: PAIN
     Dosage: 15 MG, WEEKLY (TAKE 6 TABLETS)
     Route: 065
     Dates: start: 1980

REACTIONS (4)
  - Memory impairment [Unknown]
  - Liver function test abnormal [Unknown]
  - Drug ineffective [Recovered/Resolved]
  - Nodule [Unknown]

NARRATIVE: CASE EVENT DATE: 2020
